FAERS Safety Report 8841359 (Version 3)
Quarter: 2013Q2

REPORT INFORMATION
  Report Type: Report from Study
  Country: JP (occurrence: JP)
  Receive Date: 20121015
  Receipt Date: 20130422
  Transmission Date: 20140414
  Serious: Yes (Other)
  Sender: FDA-Public Use
  Company Number: JP-VERTEX PHARMACEUTICAL INC.-2012-022665

PATIENT
  Age: 31 Year
  Sex: Female

DRUGS (5)
  1. VX-950 (TELAPREVIR) [Suspect]
     Indication: CHRONIC HEPATITIS C
     Dosage: 1500 MG, QD
     Route: 048
     Dates: start: 20120406, end: 20120710
  2. PEGINTRON [Suspect]
     Indication: CHRONIC HEPATITIS C
     Dosage: 1.3 ?G/KG, QW
     Route: 058
     Dates: start: 20120406, end: 20120412
  3. PEGINTRON [Suspect]
     Dosage: 0.66 ?G/KG, QW
     Route: 058
     Dates: start: 20120413, end: 20120926
  4. RIBAVIRIN [Suspect]
     Indication: CHRONIC HEPATITIS C
     Dosage: 400 MG, QD
     Route: 048
     Dates: start: 20120406, end: 20120926
  5. CALONAL [Concomitant]
     Dosage: 400 MG, PRN
     Route: 048
     Dates: start: 20120523, end: 20120926

REACTIONS (1)
  - Neutrophil count decreased [Unknown]
